FAERS Safety Report 18019962 (Version 1)
Quarter: 2020Q3

REPORT INFORMATION
  Report Type: Spontaneous
  Country: DE (occurrence: DE)
  Receive Date: 20200714
  Receipt Date: 20200714
  Transmission Date: 20201103
  Serious: Yes (Hospitalization)
  Sender: FDA-Public Use
  Company Number: DE-BIOGEN-2020BI00896635

PATIENT
  Age: 35 Year
  Sex: Male
  Weight: 70 kg

DRUGS (1)
  1. SPINRAZA [Suspect]
     Active Substance: NUSINERSEN
     Indication: SPINAL MUSCULAR ATROPHY
     Dosage: NICHT BEKANNT
     Route: 037
     Dates: start: 2019

REACTIONS (3)
  - Paranoid personality disorder [Not Recovered/Not Resolved]
  - Persecutory delusion [Not Recovered/Not Resolved]
  - Hallucination, auditory [Not Recovered/Not Resolved]

NARRATIVE: CASE EVENT DATE: 20200301
